FAERS Safety Report 6427920-0 (Version None)
Quarter: 2009Q4

REPORT INFORMATION
  Report Type: 
  Country: None (occurrence: None)
  Receive Date: 20091105
  Receipt Date: 20091027
  Transmission Date: 20100525
  Serious: Yes (Life-Threatening, Hospitalization)
  Sender: FDA-Public Use
  Company Number: US-JNJFOC-20091009050

PATIENT
  Sex: Female
  Weight: 51.26 kg

DRUGS (4)
  1. DURAGESIC-100 [Suspect]
     Indication: PAIN
     Route: 062
     Dates: start: 20020101, end: 20091013
  2. PROZAC [Concomitant]
     Indication: DEPRESSION
     Route: 048
  3. NEURONTIN [Concomitant]
     Indication: FIBROMYALGIA
     Route: 048
  4. TRAZODONE HCL [Concomitant]
     Indication: SLEEP DISORDER
     Route: 048
     Dates: start: 20000101

REACTIONS (5)
  - AUTOIMMUNE THYROIDITIS [None]
  - INFECTION [None]
  - INFLUENZA [None]
  - PNEUMONIA [None]
  - THYROID FUNCTION TEST ABNORMAL [None]
